FAERS Safety Report 10254303 (Version 2)
Quarter: 2014Q2

REPORT INFORMATION
  Report Type: Spontaneous
  Country: PK (occurrence: PK)
  Receive Date: 20140624
  Receipt Date: 20140624
  Transmission Date: 20141212
  Serious: Yes (Other)
  Sender: FDA-Public Use
  Company Number: PK-AMGEN INC.-PAKSP2014044308

PATIENT
  Age: 35 Year
  Sex: Female

DRUGS (3)
  1. ENBREL [Suspect]
     Indication: PRODUCT USED FOR UNKNOWN INDICATION
     Dosage: 50 MG, WEEKLY
     Route: 058
  2. DELTA-CORTRIL [Concomitant]
     Dosage: 20 MG, 1X/DAY
  3. CARBAMAZEPINE [Concomitant]
     Dosage: UNK

REACTIONS (11)
  - Pyrexia [Recovered/Resolved]
  - Rash [Recovered/Resolved]
  - Pruritus [Recovered/Resolved]
  - Drug hypersensitivity [Recovered/Resolved]
  - Lymphocytic infiltration [Recovered/Resolved]
  - Skin atrophy [Recovered/Resolved]
  - Fibrosis [Recovered/Resolved]
  - Eosinophil count increased [Recovered/Resolved]
  - Mean cell volume increased [Recovered/Resolved]
  - Mean platelet volume increased [Recovered/Resolved]
  - Monocyte count increased [Recovered/Resolved]
